FAERS Safety Report 8790505 (Version 1)
Quarter: 2012Q4

REPORT INFORMATION
  Report Type: Spontaneous
  Country: US (occurrence: None)
  Receive Date: 20120911
  Receipt Date: 20120911
  Transmission Date: 20130627
  Serious: Yes (Other)
  Sender: FDA-Public Use
  Company Number: None

PATIENT
  Age: 45 Year
  Sex: Male

DRUGS (4)
  1. ISONIAZID [Suspect]
     Indication: INFECTION TUBERCULOSIS
  2. DOCUSATE SODIUM [Concomitant]
  3. MAGNESIUM HYDROXIDE [Concomitant]
  4. NAPROXEN [Concomitant]

REACTIONS (1)
  - Stevens-Johnson syndrome [None]
